FAERS Safety Report 14375364 (Version 1)
Quarter: 2018Q1

REPORT INFORMATION
  Report Type: Spontaneous
  Country: US (occurrence: US)
  Receive Date: 20180110
  Receipt Date: 20180110
  Transmission Date: 20180509
  Serious: Yes (Hospitalization)
  Sender: FDA-Public Use
  Company Number: None

PATIENT
  Age: 21 Year
  Sex: Male

DRUGS (18)
  1. TACROLIMUS. [Suspect]
     Active Substance: TACROLIMUS
     Indication: HEART TRANSPLANT
     Route: 048
     Dates: start: 20170127
  2. COLACE [Concomitant]
     Active Substance: DOCUSATE SODIUM
  3. VITAMIN D3 [Concomitant]
     Active Substance: CHOLECALCIFEROL
  4. SIMVASTATIN. [Concomitant]
     Active Substance: SIMVASTATIN
  5. ZOCOR [Concomitant]
     Active Substance: SIMVASTATIN
  6. PREDNISONE. [Concomitant]
     Active Substance: PREDNISONE
  7. VALGANCICLOV [Concomitant]
  8. BUMETANIDE. [Concomitant]
     Active Substance: BUMETANIDE
  9. OMEPRAZOLE. [Concomitant]
     Active Substance: OMEPRAZOLE
  10. CALCIUM [Concomitant]
     Active Substance: CALCIUM
  11. SMZ/TMP [Concomitant]
     Active Substance: SULFAMETHOXAZOLE\TRIMETHOPRIM
  12. LISINOPRIL. [Concomitant]
     Active Substance: LISINOPRIL
  13. PRAVASTATIN. [Concomitant]
     Active Substance: PRAVASTATIN
  14. BACTRIM [Concomitant]
     Active Substance: SULFAMETHOXAZOLE\TRIMETHOPRIM
  15. MYCOPHENOLATE [Suspect]
     Active Substance: MYCOPHENOLIC ACID
     Indication: HEART TRANSPLANT
     Route: 048
     Dates: start: 20170127
  16. MAGNESIUM [Concomitant]
     Active Substance: MAGNESIUM
  17. IRON [Concomitant]
     Active Substance: IRON
  18. ASPIRIN. [Concomitant]
     Active Substance: ASPIRIN

REACTIONS (1)
  - Transplant rejection [None]

NARRATIVE: CASE EVENT DATE: 20171130
